FAERS Safety Report 8820448 (Version 1)
Quarter: 2012Q4

REPORT INFORMATION
  Report Type: 
  Country: CN (occurrence: CN)
  Receive Date: 20121002
  Receipt Date: 20121002
  Transmission Date: 20130627
  Serious: Yes (Other)
  Sender: FDA-Public Use
  Company Number: CN-BAYER-2012-102375

PATIENT
  Age: 65 Year
  Sex: Female
  Weight: 50 kg

DRUGS (1)
  1. GLUCOBAY [Suspect]
     Indication: HYPERGLYCAEMIA
     Dosage: 50 mg, TID
     Route: 048
     Dates: start: 20111123, end: 20111124

REACTIONS (1)
  - Asphyxia [Recovered/Resolved]
